FAERS Safety Report 6425849-5 (Version None)
Quarter: 2009Q4

REPORT INFORMATION
  Report Type: 
  Country: None (occurrence: None)
  Receive Date: 20091029
  Receipt Date: 20091019
  Transmission Date: 20100525
  Serious: Yes (Death, Hospitalization)
  Sender: FDA-Public Use
  Company Number: 8053421

PATIENT
  Age: 36 Year
  Sex: Male

DRUGS (1)
  1. CIMZIA [Suspect]
     Indication: CROHN'S DISEASE
     Dosage: 1/2W SC
     Route: 058
     Dates: start: 20090819, end: 20090902

REACTIONS (11)
  - CARDIO-RESPIRATORY ARREST [None]
  - COLITIS [None]
  - CONDITION AGGRAVATED [None]
  - CROHN'S DISEASE [None]
  - ENTEROCOCCAL INFECTION [None]
  - HERPES ZOSTER [None]
  - LEUKOCYTOSIS [None]
  - PULMONARY EMBOLISM [None]
  - RENAL FAILURE [None]
  - SEPTIC SHOCK [None]
  - VASCULITIS [None]
